FAERS Safety Report 19375781 (Version 2)
Quarter: 2021Q2

REPORT INFORMATION
  Report Type: Report from Study
  Country: US (occurrence: US)
  Receive Date: 20210604
  Receipt Date: 20210615
  Transmission Date: 20210717
  Serious: Yes (Other)
  Sender: FDA-Public Use
  Company Number: NVSC2021US119224

PATIENT
  Sex: Male

DRUGS (2)
  1. ENTRESTO [Suspect]
     Active Substance: SACUBITRIL\VALSARTAN
     Indication: PRODUCT USED FOR UNKNOWN INDICATION
     Dosage: 50 MG (24/26 MG), BID
     Route: 048
  2. RANEXA [Concomitant]
     Active Substance: RANOLAZINE
     Indication: PRODUCT USED FOR UNKNOWN INDICATION
     Dosage: UNK
     Route: 065

REACTIONS (10)
  - Atrial fibrillation [Recovered/Resolved]
  - Cataract [Unknown]
  - Chest pain [Unknown]
  - Decreased appetite [Unknown]
  - Somnolence [Unknown]
  - Depression [Unknown]
  - Fall [Unknown]
  - Product dose omission issue [Unknown]
  - Insomnia [Unknown]
  - Dizziness [Unknown]
